FAERS Safety Report 18494698 (Version 1)
Quarter: 2020Q4

REPORT INFORMATION
  Report Type: Spontaneous
  Country: US (occurrence: US)
  Receive Date: 20201112
  Receipt Date: 20201112
  Transmission Date: 20210114
  Serious: Yes (Other)
  Sender: FDA-Public Use
  Company Number: US-TAKEDA-2020TUS048537

PATIENT
  Sex: Male
  Weight: 75.28 kg

DRUGS (20)
  1. ATORVASTATIN CALCIUM. [Concomitant]
     Active Substance: ATORVASTATIN CALCIUM
  2. GABAPENTIN. [Concomitant]
     Active Substance: GABAPENTIN
  3. BACLOFEN. [Concomitant]
     Active Substance: BACLOFEN
  4. VITAMIN B12 [COBAMAMIDE] [Concomitant]
  5. L METHYLFOLATE [Concomitant]
  6. POTASSIUM CHLORIDE. [Concomitant]
     Active Substance: POTASSIUM CHLORIDE
  7. VALIUM [Concomitant]
     Active Substance: DIAZEPAM
  8. OXYCODONE AND ACETAMINOPHEN [Concomitant]
     Active Substance: ACETAMINOPHEN\OXYCODONE HYDROCHLORIDE
  9. BREO ELLIPTA [Concomitant]
     Active Substance: FLUTICASONE FUROATE\VILANTEROL TRIFENATATE
  10. DANTROLENE SODIUM. [Concomitant]
     Active Substance: DANTROLENE SODIUM
  11. FOLIC ACID. [Concomitant]
     Active Substance: FOLIC ACID
  12. ABILIFY [Concomitant]
     Active Substance: ARIPIPRAZOLE
  13. VITAMIN D2 [Concomitant]
     Active Substance: ERGOCALCIFEROL
  14. ZALEPLON. [Concomitant]
     Active Substance: ZALEPLON
  15. PROAIR HFA [Concomitant]
     Active Substance: ALBUTEROL SULFATE
  16. DULOXETINE. [Concomitant]
     Active Substance: DULOXETINE
  17. LISINOPRIL. [Concomitant]
     Active Substance: LISINOPRIL
  18. GAMMAGARD LIQUID [Suspect]
     Active Substance: HUMAN IMMUNOGLOBULIN G
     Indication: CHRONIC INFLAMMATORY DEMYELINATING POLYRADICULONEUROPATHY
     Dosage: 100 GRAM, Q4WEEKS
     Route: 042
     Dates: start: 20100115
  19. PANTOPRAZOLE SODIUM. [Concomitant]
     Active Substance: PANTOPRAZOLE SODIUM
  20. HYDROCHLOROTHIAZIDE. [Concomitant]
     Active Substance: HYDROCHLOROTHIAZIDE

REACTIONS (2)
  - Loss of consciousness [Unknown]
  - Seizure [Unknown]
